FAERS Safety Report 13735717 (Version 1)
Quarter: 2017Q3

REPORT INFORMATION
  Report Type: Spontaneous
  Country: US (occurrence: US)
  Receive Date: 20170708
  Receipt Date: 20170708
  Transmission Date: 20171127
  Serious: Yes (Disabling, Other)
  Sender: FDA-Public Use
  Company Number: None

PATIENT
  Age: 60 Year
  Sex: Male
  Weight: 80.1 kg

DRUGS (4)
  1. GABAPENTIN 300MG [Suspect]
     Active Substance: GABAPENTIN
     Indication: SCIATICA
     Dosage: ?          OTHER STRENGTH:MG;?
     Route: 048
  2. GABAPENTIN. [Suspect]
     Active Substance: GABAPENTIN
  3. GEMFIBROZIL. [Concomitant]
     Active Substance: GEMFIBROZIL
  4. METFORMIN [Concomitant]
     Active Substance: METFORMIN HYDROCHLORIDE

REACTIONS (6)
  - Headache [None]
  - Judgement impaired [None]
  - Tic [None]
  - Anxiety [None]
  - Dyskinesia [None]
  - Thinking abnormal [None]

NARRATIVE: CASE EVENT DATE: 20170701
